FAERS Safety Report 13324014 (Version 2)
Quarter: 2017Q2

REPORT INFORMATION
  Report Type: Report from Study
  Country: US (occurrence: US)
  Receive Date: 20170310
  Receipt Date: 20170425
  Transmission Date: 20170830
  Serious: Yes (Hospitalization)
  Sender: FDA-Public Use
  Company Number: PHHO2017US004705

PATIENT
  Age: 67 Year
  Sex: Female
  Weight: 57.7 kg

DRUGS (5)
  1. PROTONIX [Concomitant]
     Active Substance: PANTOPRAZOLE SODIUM
     Indication: ABDOMINAL PAIN
     Dosage: 40 MG, QD
     Route: 048
     Dates: start: 20161213
  2. KISQALI [Suspect]
     Active Substance: RIBOCICLIB
     Indication: OVARIAN CANCER
     Dosage: 400 MG, QD
     Route: 048
     Dates: start: 20170126, end: 20170220
  3. CGS 20267 [Suspect]
     Active Substance: LETROZOLE
     Indication: OVARIAN CANCER
     Dosage: 2.5 MG, QD
     Route: 048
     Dates: start: 20170126, end: 20170220
  4. SYNTHROID [Concomitant]
     Active Substance: LEVOTHYROXINE SODIUM
     Indication: HYPOTHYROIDISM
     Dosage: 50 UG, QD
     Route: 048
     Dates: start: 20140730
  5. LOVENOX [Concomitant]
     Active Substance: ENOXAPARIN SODIUM
     Indication: PULMONARY EMBOLISM
     Dosage: 40 MG, QD
     Route: 065
     Dates: start: 20170224

REACTIONS (4)
  - Abdominal pain [Recovering/Resolving]
  - Constipation [Recovering/Resolving]
  - Vomiting [Recovering/Resolving]
  - Nausea [Recovering/Resolving]

NARRATIVE: CASE EVENT DATE: 20170224
